FAERS Safety Report 15937646 (Version 1)
Quarter: 2019Q1

REPORT INFORMATION
  Report Type: Spontaneous
  Country: FR (occurrence: FR)
  Receive Date: 20190208
  Receipt Date: 20190208
  Transmission Date: 20190417
  Serious: Yes (Hospitalization)
  Sender: FDA-Public Use
  Company Number: FR-JNJFOC-20190138911

PATIENT
  Sex: Female
  Weight: 49 kg

DRUGS (5)
  1. ALMOGRAN [Suspect]
     Active Substance: ALMOTRIPTAN MALATE
     Indication: HEADACHE
     Route: 048
     Dates: end: 20100104
  2. NOCERTONE [Concomitant]
     Active Substance: OXETORONE
     Route: 065
  3. EPITOMAX [Concomitant]
     Active Substance: TOPIRAMATE
     Route: 065
  4. SANMIGRAN [Concomitant]
     Active Substance: PIZOTYLINE MALEATE
     Route: 065
  5. BIPROFENID [Concomitant]
     Active Substance: KETOPROFEN
     Route: 065

REACTIONS (1)
  - Drug dependence [Recovered/Resolved]
